FAERS Safety Report 7069947-4 (Version None)
Quarter: 2010Q4

REPORT INFORMATION
  Report Type: 
  Country: None (occurrence: None)
  Receive Date: 20101028
  Receipt Date: 20100816
  Transmission Date: 20110411
  Serious: No
  Sender: FDA-Public Use
  Company Number: US-WYE-H16692710

PATIENT
  Sex: Female
  Weight: 113.5 kg

DRUGS (6)
  1. EFFEXOR [Suspect]
     Indication: PREMENSTRUAL SYNDROME
     Dates: start: 20100101, end: 20100101
  2. EFFEXOR [Suspect]
     Dosage: 37.5 MG UNSPECIFIED FREQUENCY
     Dates: start: 20100401, end: 20100101
  3. EFFEXOR [Suspect]
     Dates: start: 20100101, end: 20100101
  4. EFFEXOR [Suspect]
     Dosage: SPLIT 37.5 MG IN QUARTERS AND TAKING A QUARTER OF A TABLET DAILY
     Dates: start: 20100101
  5. IBUPROFEN [Suspect]
     Indication: HEADACHE
     Dosage: UNKNOWN
     Dates: start: 20100101
  6. TOPAMAX [Concomitant]

REACTIONS (7)
  - CHILLS [None]
  - DRUG INEFFECTIVE [None]
  - DRUG WITHDRAWAL SYNDROME [None]
  - INTENTIONAL DRUG MISUSE [None]
  - MYALGIA [None]
  - TINNITUS [None]
  - WRONG TECHNIQUE IN DRUG USAGE PROCESS [None]
